FAERS Safety Report 7410678-6 (Version None)
Quarter: 2011Q2

REPORT INFORMATION
  Report Type: 
  Country: None (occurrence: None)
  Receive Date: 20110413
  Receipt Date: 20101021
  Transmission Date: 20111010
  Serious: Yes (Hospitalization, Other)
  Sender: FDA-Public Use
  Company Number: US-BAYER-201023031NA

PATIENT
  Age: 21 Year
  Sex: Female
  Weight: 98 kg

DRUGS (14)
  1. YASMIN [Suspect]
  2. YASMIN [Suspect]
  3. YASMIN [Suspect]
     Indication: PRODUCT USED FOR UNKNOWN INDICATION
     Route: 048
     Dates: start: 20060501, end: 20080715
  4. IBUPROFENO [Concomitant]
     Dosage: 600 MG, UNK
     Dates: start: 20090408
  5. NAPROXEN [Concomitant]
     Dosage: 500 MG, UNK
     Dates: start: 20060806
  6. NAPROXEN [Concomitant]
     Dosage: 500 MG, UNK
     Dates: start: 20061022
  7. SEROQUEL [Concomitant]
     Indication: HALLUCINATION, AUDITORY
     Dosage: UNK
     Dates: start: 20060101
  8. IBUPROFENO [Concomitant]
     Dosage: 800 MG, UNK
     Dates: start: 20050322
  9. YASMIN [Suspect]
  10. NAPROXEN [Concomitant]
     Dosage: 500 MG, UNK
     Dates: start: 20090517
  11. PAXIL [Concomitant]
     Indication: ANXIETY
     Dosage: UNK
     Dates: start: 20060101
  12. IBUPROFENO [Concomitant]
     Dosage: 800 MG, UNK
     Dates: start: 20050711
  13. NAPROXEN [Concomitant]
     Dosage: 500 MG, UNK
     Dates: start: 20090507
  14. BENXTROPINE [Concomitant]
     Indication: ADVERSE DRUG REACTION
     Dosage: UNK
     Dates: start: 20060101

REACTIONS (3)
  - CHOLECYSTITIS CHRONIC [None]
  - CHOLELITHIASIS [None]
  - GALLBLADDER DISORDER [None]
